FAERS Safety Report 9656088 (Version 1)
Quarter: 2013Q4

REPORT INFORMATION
  Report Type: Spontaneous
  Country: US (occurrence: US)
  Receive Date: 20131030
  Receipt Date: 20131030
  Transmission Date: 20140711
  Serious: No
  Sender: FDA-Public Use
  Company Number: US-ROXANE LABORATORIES, INC.-2013-RO-01725RO

PATIENT
  Sex: Female

DRUGS (2)
  1. PREDNISONE [Suspect]
     Indication: DERMATITIS CONTACT
     Dosage: 60 MG
  2. PREDNISONE [Suspect]
     Dosage: 10 MG

REACTIONS (1)
  - Rash [Unknown]
